FAERS Safety Report 9011814 (Version 1)
Quarter: 2012Q4

REPORT INFORMATION
  Report Type: Spontaneous
  Country: US (occurrence: None)
  Receive Date: 20121228
  Receipt Date: 20121228
  Transmission Date: 20130627
  Serious: Yes (Disabling, Other)
  Sender: FDA-Public Use
  Company Number: JPI-P-026978

PATIENT
  Age: 8 Year
  Sex: Male
  Weight: 31.75 kg

DRUGS (15)
  1. XYREM (500 MILLIGRAM/MILLILITERS, SOLUTION) (SODIUM OXYBATE) [Suspect]
     Indication: CATAPLEXY
     Dosage: (3 gm,2 in 1 D)
     Route: 048
     Dates: start: 20090204
  2. XYREM (500 MILLIGRAM/MILLILITERS, SOLUTION) (SODIUM OXYBATE) [Suspect]
     Indication: EXCESSIVE DAYTIME SLEEPINESS
     Dosage: (3 gm,2 in 1 D)
     Route: 048
     Dates: start: 20090204
  3. XYREM (500 MILLIGRAM/MILLILITERS, SOLUTION) (SODIUM OXYBATE) [Suspect]
     Indication: CATAPLEXY
     Dosage: (3.75 gm,2 in 1 D)
     Route: 048
     Dates: start: 20091009
  4. XYREM (500 MILLIGRAM/MILLILITERS, SOLUTION) (SODIUM OXYBATE) [Suspect]
     Indication: EXCESSIVE DAYTIME SLEEPINESS
     Dosage: (3.75 gm,2 in 1 D)
     Route: 048
     Dates: start: 20091009
  5. XYREM (500 MILLIGRAM/MILLILITERS, SOLUTION) (SODIUM OXYBATE) [Suspect]
     Indication: CATAPLEXY
     Dosage: (4 gm,2 in 1 D)
     Route: 048
     Dates: start: 20100104
  6. XYREM (500 MILLIGRAM/MILLILITERS, SOLUTION) (SODIUM OXYBATE) [Suspect]
     Indication: EXCESSIVE DAYTIME SLEEPINESS
     Dosage: (4 gm,2 in 1 D)
     Route: 048
     Dates: start: 20100104
  7. XYREM (500 MILLIGRAM/MILLILITERS, SOLUTION) (SODIUM OXYBATE) [Suspect]
     Indication: CATAPLEXY
  8. XYREM (500 MILLIGRAM/MILLILITERS, SOLUTION) (SODIUM OXYBATE) [Suspect]
     Indication: EXCESSIVE DAYTIME SLEEPINESS
  9. XYREM (500 MILLIGRAM/MILLILITERS, SOLUTION) (SODIUM OXYBATE) [Suspect]
     Indication: CATAPLEXY
  10. XYREM (500 MILLIGRAM/MILLILITERS, SOLUTION) (SODIUM OXYBATE) [Suspect]
     Indication: EXCESSIVE DAYTIME SLEEPINESS
  11. XYREM (500 MILLIGRAM/MILLILITERS, SOLUTION) (SODIUM OXYBATE) [Suspect]
     Indication: CATAPLEXY
     Route: 048
  12. XYREM (500 MILLIGRAM/MILLILITERS, SOLUTION) (SODIUM OXYBATE) [Suspect]
     Indication: EXCESSIVE DAYTIME SLEEPINESS
     Route: 048
  13. ACETYL GLUTATHIONE [Concomitant]
  14. MODAFINIL [Concomitant]
  15. VENLAFAXINE [Concomitant]

REACTIONS (15)
  - Bone pain [None]
  - Gait disturbance [None]
  - Activities of daily living impaired [None]
  - Precocious puberty [None]
  - Psychotic disorder [None]
  - Myalgia [None]
  - Blood cortisol increased [None]
  - Weight increased [None]
  - Amnesia [None]
  - Sleep apnoea syndrome [None]
  - Middle insomnia [None]
  - Sex hormone binding globulin decreased [None]
  - Vision blurred [None]
  - Somnambulism [None]
  - Abnormal behaviour [None]
